FAERS Safety Report 4337444-2 (Version None)
Quarter: 2004Q2

REPORT INFORMATION
  Report Type: 
  Country: None (occurrence: None)
  Receive Date: 20040408
  Receipt Date: 20040401
  Transmission Date: 20050107
  Serious: Yes (Hospitalization)
  Sender: FDA-Public Use
  Company Number: IT-JNJFOC-20040400681

PATIENT
  Age: 63 Year
  Sex: Female

DRUGS (4)
  1. REMICADE [Suspect]
     Indication: POLYARTHRITIS
     Dosage: 3 MG/KG, 1 IN 1 CYCLICAL, INTRAVENOUS
     Route: 042
     Dates: start: 20020503, end: 20030414
  2. REMICADE [Suspect]
     Indication: RHEUMATOID ARTHRITIS
     Dosage: 3 MG/KG, 1 IN 1 CYCLICAL, INTRAVENOUS
     Route: 042
     Dates: start: 20020503, end: 20030414
  3. METHOTREXATE [Concomitant]
  4. DELTACORTENE (PREDNISONE) TABLETS [Concomitant]

REACTIONS (2)
  - EMPYEMA [None]
  - PLEURISY [None]
